FAERS Safety Report 19075855 (Version 2)
Quarter: 2022Q3

REPORT INFORMATION
  Report Type: Spontaneous
  Country: US (occurrence: US)
  Receive Date: 20210331
  Receipt Date: 20220911
  Transmission Date: 20221027
  Serious: No
  Sender: FDA-Public Use
  Company Number: US-SA-SAC20210325001305

PATIENT
  Sex: Female
  Weight: 50.794 kg

DRUGS (16)
  1. CEREZYME [Suspect]
     Active Substance: IMIGLUCERASE
     Indication: Gaucher^s disease
     Dosage: 3600 U (90 ML), QOW
     Route: 042
     Dates: start: 19940728
  2. SODIUM CHLORIDE [Concomitant]
     Active Substance: SODIUM CHLORIDE
  3. SODIUM CHLORIDE [Concomitant]
     Active Substance: SODIUM CHLORIDE
  4. STERILE WATER [Concomitant]
     Active Substance: WATER
  5. EPINEPHRINE [Concomitant]
     Active Substance: EPINEPHRINE
  6. PEPCID [Concomitant]
     Active Substance: FAMOTIDINE
  7. NITROFURANTOIN [Concomitant]
     Active Substance: NITROFURANTOIN
  8. OXYCODONE [Concomitant]
     Active Substance: OXYCODONE
  9. CEPHALEXIN [Concomitant]
     Active Substance: CEPHALEXIN
  10. METHADONE [Concomitant]
     Active Substance: METHADONE HYDROCHLORIDE
  11. OXYBUTYNIN [Concomitant]
     Active Substance: OXYBUTYNIN
  12. GABAPENTIN [Concomitant]
     Active Substance: GABAPENTIN
  13. FAMOTIDINE [Concomitant]
     Active Substance: FAMOTIDINE
  14. TYLENOL [Concomitant]
     Active Substance: ACETAMINOPHEN
  15. VITAMIN C [Concomitant]
     Active Substance: ASCORBIC ACID
  16. VITAMINS NOS [Concomitant]
     Active Substance: VITAMINS

REACTIONS (1)
  - Urinary tract infection [Recovered/Resolved]

NARRATIVE: CASE EVENT DATE: 20210301
